FAERS Safety Report 24927023 (Version 2)
Quarter: 2025Q1

REPORT INFORMATION
  Report Type: Report from Study
  Country: US (occurrence: US)
  Receive Date: 20250205
  Receipt Date: 20250206
  Transmission Date: 20250408
  Serious: Yes (Death)
  Sender: ROCHE
  Company Number: US-ROCHE-10000014313

PATIENT
  Age: 71 Year
  Sex: Male

DRUGS (1)
  1. AVASTIN [Suspect]
     Active Substance: BEVACIZUMAB
     Indication: Prostate cancer
     Route: 065
     Dates: start: 20240821

REACTIONS (2)
  - Off label use [Unknown]
  - Death [Fatal]
